FAERS Safety Report 6284607-5 (Version None)
Quarter: 2009Q3

REPORT INFORMATION
  Report Type: 
  Country: None (occurrence: None)
  Receive Date: 20090727
  Receipt Date: 20090622
  Transmission Date: 20100115
  Serious: No
  Sender: FDA-Public Use
  Company Number: US-ALEXION-A200900509

PATIENT
  Sex: Male

DRUGS (11)
  1. SOLIRIS [Suspect]
     Indication: PAROXYSMAL NOCTURNAL HAEMOGLOBINURIA
     Dosage: 600 MG, QW
     Route: 042
     Dates: start: 20070607, end: 20070627
  2. SOLIRIS [Suspect]
     Dosage: 900 MG, Q2W
     Route: 042
     Dates: start: 20070703
  3. LIPITOR [Concomitant]
  4. SENOKOT                            /00142201/ [Concomitant]
  5. VITAMIN B12                        /00056201/ [Concomitant]
  6. ASPIRIN [Concomitant]
  7. METOPROLOL SUCCINATE [Concomitant]
  8. DESFERAL                           /00062903/ [Concomitant]
  9. NITROGLYCERIN [Concomitant]
  10. FOLIC ACID [Concomitant]
  11. ISOSORBIDE DINITRATE [Concomitant]

REACTIONS (1)
  - FALL [None]
